FAERS Safety Report 8214367-X (Version None)
Quarter: 2012Q1

REPORT INFORMATION
  Report Type: 
  Country: None (occurrence: None)
  Receive Date: 20120316
  Receipt Date: 20120307
  Transmission Date: 20120608
  Serious: Yes (Hospitalization)
  Sender: FDA-Public Use
  Company Number: US-JNJFOC-20120303588

PATIENT
  Sex: Female
  Weight: 59.88 kg

DRUGS (4)
  1. SIMPONI [Suspect]
     Indication: RHEUMATOID ARTHRITIS
     Route: 058
     Dates: start: 20100101, end: 20120101
  2. LUNESTA [Concomitant]
     Indication: SLEEP DISORDER
     Route: 048
  3. METHOTREXATE [Suspect]
     Indication: ARTHRITIS
  4. PREMARIN [Concomitant]
     Indication: HORMONE REPLACEMENT THERAPY
     Route: 048

REACTIONS (10)
  - HYPERTENSION [None]
  - PNEUMONIA KLEBSIELLA [None]
  - ARRHYTHMIA [None]
  - HYPOTENSION [None]
  - PNEUMONIA STREPTOCOCCAL [None]
  - IMMUNE SYSTEM DISORDER [None]
  - OSTEONECROSIS [None]
  - SPINAL CORD INJURY [None]
  - BLOOD POTASSIUM DECREASED [None]
  - WEIGHT DECREASED [None]
